FAERS Safety Report 12948537 (Version 1)
Quarter: 2016Q4

REPORT INFORMATION
  Report Type: Spontaneous
  Country: PK (occurrence: PK)
  Receive Date: 20161117
  Receipt Date: 20161117
  Transmission Date: 20170207
  Serious: Yes (Hospitalization, Other)
  Sender: FDA-Public Use
  Company Number: PK-ACCORD-045568

PATIENT
  Age: 22 Year
  Sex: Female

DRUGS (4)
  1. CLOZAPINE. [Suspect]
     Active Substance: CLOZAPINE
     Indication: SCHIZOPHRENIA
     Dosage: DOSE WAS TITRATED UP?ON 14TH DAY:175MG DIVIDED INTO 75 MG IN MORNING AND 100 MG IN EVENING
  2. RISPERIDONE. [Concomitant]
     Active Substance: RISPERIDONE
     Indication: SCHIZOPHRENIA
  3. OLANZAPINE. [Concomitant]
     Active Substance: OLANZAPINE
     Indication: SCHIZOPHRENIA
     Dosage: DOSE WAS TITRATED UP TO 20MG
  4. TRIHEXYPHENIDYL [Concomitant]
     Active Substance: TRIHEXYPHENIDYL
     Indication: SALIVARY HYPERSECRETION

REACTIONS (8)
  - Weight increased [Unknown]
  - Head injury [Unknown]
  - Fall [Unknown]
  - Salivary hypersecretion [Unknown]
  - Increased appetite [Unknown]
  - Generalised tonic-clonic seizure [Recovered/Resolved]
  - Sedation [Not Recovered/Not Resolved]
  - Alopecia [Unknown]
